FAERS Safety Report 16641852 (Version 1)
Quarter: 2019Q3

REPORT INFORMATION
  Report Type: Spontaneous
  Country: US (occurrence: US)
  Receive Date: 20190726
  Receipt Date: 20190726
  Transmission Date: 20191004
  Serious: No
  Sender: FDA-Public Use
  Company Number: None

PATIENT
  Age: 63 Year
  Sex: Female

DRUGS (2)
  1. CHOLESTYRAMINE POWDER FOR ORAL SUSPENSION [Suspect]
     Active Substance: CHOLESTYRAMINE
     Route: 048
     Dates: start: 20180501
  2. CHOLESTYRAMINE POWDER FOR ORAL SUSPENSION [Suspect]
     Active Substance: CHOLESTYRAMINE
     Route: 048
     Dates: start: 20180501

REACTIONS (2)
  - Product substitution issue [None]
  - Throat irritation [None]

NARRATIVE: CASE EVENT DATE: 20190724
